FAERS Safety Report 7471623-0 (Version None)
Quarter: 2011Q2

REPORT INFORMATION
  Report Type: 
  Country: None (occurrence: None)
  Receive Date: 20110502
  Receipt Date: 20110418
  Transmission Date: 20111010
  Serious: Yes (Hospitalization)
  Sender: FDA-Public Use
  Company Number: 2011-0561

PATIENT
  Sex: Male

DRUGS (1)
  1. APO-GO-AMPOULES (APO-GO) (APOMORPHINE HYDROCHLORIDE) (APOMORPHINE HYDR [Suspect]
     Indication: PARKINSON'S DISEASE
     Dosage: 3 MG/HR FOR 12 HRS/DAY (NOT REPORTED, 3 MG/HR FOR 12 HRS/DAY)
     Dates: start: 20110222

REACTIONS (3)
  - SOMNOLENCE [None]
  - INSOMNIA [None]
  - DEPRESSED LEVEL OF CONSCIOUSNESS [None]
